FAERS Safety Report 10079943 (Version 1)
Quarter: 2014Q2

REPORT INFORMATION
  Report Type: Spontaneous
  Country: GB (occurrence: GB)
  Receive Date: 20140415
  Receipt Date: 20140415
  Transmission Date: 20141212
  Serious: Yes (Other)
  Sender: FDA-Public Use
  Company Number: PHHY2014GB042400

PATIENT
  Age: 84 Year
  Sex: Female

DRUGS (4)
  1. LEVOTHYROXINE [Suspect]
     Indication: HYPOTHYROIDISM
     Dosage: 25 UG, QD
     Route: 048
  2. METFORMIN [Interacting]
     Indication: DIABETES MELLITUS
  3. LEVOTHYROXINE [Interacting]
     Indication: HYPOTHYROIDISM
     Dosage: 50 UG, QD
     Route: 048
  4. LEVOTHYROXINE [Interacting]
     Dosage: 75 UG, UNK

REACTIONS (2)
  - Cardiac disorder [Unknown]
  - Drug interaction [Unknown]
